FAERS Safety Report 19434421 (Version 1)
Quarter: 2021Q2

REPORT INFORMATION
  Report Type: Spontaneous
  Country: US (occurrence: US)
  Receive Date: 20210618
  Receipt Date: 20210618
  Transmission Date: 20210717
  Serious: Yes (Other)
  Sender: FDA-Public Use
  Company Number: US-GYP-000339

PATIENT
  Age: 71 Year

DRUGS (1)
  1. PREDNISONE. [Suspect]
     Active Substance: PREDNISONE
     Indication: SEROUS RETINAL DETACHMENT
     Route: 048

REACTIONS (4)
  - Serous retinal detachment [Recovering/Resolving]
  - Therapeutic product effect incomplete [Unknown]
  - Disease progression [Recovering/Resolving]
  - Product use in unapproved indication [Unknown]
